FAERS Safety Report 14000700 (Version 1)
Quarter: 2017Q3

REPORT INFORMATION
  Report Type: Spontaneous
  Country: US (occurrence: US)
  Receive Date: 20170922
  Receipt Date: 20170922
  Transmission Date: 20171128
  Serious: No
  Sender: FDA-Public Use
  Company Number: US-JNJFOC-20170711897

PATIENT
  Sex: Male

DRUGS (1)
  1. XARELTO [Suspect]
     Active Substance: RIVAROXABAN
     Indication: DEEP VEIN THROMBOSIS
     Route: 048
     Dates: end: 201707

REACTIONS (5)
  - Adverse event [Unknown]
  - Immune system disorder [Unknown]
  - Feeling abnormal [Unknown]
  - Tinnitus [Unknown]
  - Therapy cessation [Unknown]

NARRATIVE: CASE EVENT DATE: 201707
